FAERS Safety Report 4682142-9 (Version None)
Quarter: 2005Q2

REPORT INFORMATION
  Report Type: 
  Country: None (occurrence: None)
  Receive Date: 20050602
  Receipt Date: 20050518
  Transmission Date: 20051028
  Serious: Yes (Life-Threatening)
  Sender: FDA-Public Use
  Company Number: PHBS2005CA06026

PATIENT
  Age: 90 Year
  Sex: Male
  Weight: 69.2189 kg

DRUGS (1)
  1. VISUDYNE [Suspect]
     Indication: MACULAR DEGENERATION
     Dosage: 15 MG DAILY IV
     Route: 042
     Dates: start: 20050415, end: 20050415

REACTIONS (4)
  - ANAEMIA [None]
  - FAECES DISCOLOURED [None]
  - HAEMORRHAGE [None]
  - MELAENA [None]
